FAERS Safety Report 24062675 (Version 2)
Quarter: 2024Q4

REPORT INFORMATION
  Report Type: Spontaneous
  Country: US (occurrence: US)
  Receive Date: 20240708
  Receipt Date: 20241223
  Transmission Date: 20250115
  Serious: No
  Sender: JOHNSON AND JOHNSON
  Company Number: US-JNJFOC-20240675163

PATIENT
  Sex: Female

DRUGS (1)
  1. RYBREVANT [Suspect]
     Active Substance: AMIVANTAMAB-VMJW
     Indication: Product used for unknown indication
     Route: 065

REACTIONS (8)
  - Oxygen saturation decreased [Unknown]
  - Infusion related reaction [Unknown]
  - Erythema [Unknown]
  - Defaecation urgency [Unknown]
  - Dyspnoea [Unknown]
  - Feeling hot [Unknown]
  - Nausea [Unknown]
  - Flushing [Unknown]
